FAERS Safety Report 4770723-3 (Version None)
Quarter: 2005Q3

REPORT INFORMATION
  Report Type: 
  Country: None (occurrence: None)
  Receive Date: 20050914
  Receipt Date: 20050902
  Transmission Date: 20060218
  Serious: Yes (Other)
  Sender: FDA-Public Use
  Company Number: NO-2005-018141

PATIENT
  Age: 34 Year
  Sex: Female

DRUGS (1)
  1. LEVONOVA(LEVONORGESTREL) IUS [Suspect]
     Dosage: 20 ?G/DAY, CONT, INTRA-UTERINE
     Route: 015
     Dates: start: 20050613, end: 20050823

REACTIONS (2)
  - INFECTION [None]
  - MENOMETRORRHAGIA [None]
